FAERS Safety Report 5369065-7 (Version None)
Quarter: 2007Q2

REPORT INFORMATION
  Report Type: 
  Country: None (occurrence: None)
  Receive Date: 20070625
  Receipt Date: 20070108
  Transmission Date: 20071010
  Serious: Yes (Hospitalization)
  Sender: FDA-Public Use
  Company Number: US-ASTRAZENECA-2007UW00949

PATIENT
  Age: 35 Year
  Sex: Male

DRUGS (3)
  1. ROSUVASTATIN [Suspect]
     Indication: DYSLIPIDAEMIA
     Route: 048
     Dates: start: 20060615
  2. ABT 335 [Suspect]
     Indication: DYSLIPIDAEMIA
     Route: 048
     Dates: start: 20060615
  3. KARVEA HCT [Concomitant]
     Indication: HYPERTENSION
     Dates: start: 20061224

REACTIONS (1)
  - HAEMATURIA [None]
